FAERS Safety Report 12657311 (Version 1)
Quarter: 2016Q3

REPORT INFORMATION
  Report Type: Spontaneous
  Country: US (occurrence: US)
  Receive Date: 20160816
  Receipt Date: 20160816
  Transmission Date: 20161109
  Serious: No
  Sender: FDA-Public Use
  Company Number: US-ENDO PHARMACEUTICALS INC.-2016-002078

PATIENT
  Age: 52 Year
  Sex: Female
  Weight: 56.75 kg

DRUGS (5)
  1. MIGRELIEF [Concomitant]
     Indication: MIGRAINE PROPHYLAXIS
  2. SUMAVEL DOSEPRO [Suspect]
     Active Substance: SUMATRIPTAN SUCCINATE
     Indication: MIGRAINE
     Dosage: INJECT INTO THE THIGH AS NEEDED FOR MIGRAINE. REPEAT ONE TIME.
     Route: 065
     Dates: start: 2014
  3. SUMAVEL DOSEPRO [Suspect]
     Active Substance: SUMATRIPTAN SUCCINATE
     Route: 065
  4. TOPAMAX [Concomitant]
     Active Substance: TOPIRAMATE
     Indication: MIGRAINE PROPHYLAXIS
  5. VITAMIN B2 [Concomitant]
     Active Substance: RIBOFLAVIN
     Indication: MIGRAINE PROPHYLAXIS

REACTIONS (11)
  - Nasopharyngitis [Not Recovered/Not Resolved]
  - Injection site haemorrhage [Unknown]
  - Headache [Not Recovered/Not Resolved]
  - Emergency care [Recovered/Resolved]
  - Feeling abnormal [Unknown]
  - Pain [Unknown]
  - Injection site pain [Unknown]
  - Injection site bruising [Unknown]
  - Initial insomnia [Unknown]
  - Drug effect decreased [Unknown]
  - Device malfunction [Recovered/Resolved]

NARRATIVE: CASE EVENT DATE: 20160308
